FAERS Safety Report 25504477 (Version 1)
Quarter: 2025Q3

REPORT INFORMATION
  Report Type: Spontaneous
  Country: EU (occurrence: EU)
  Receive Date: 20250702
  Receipt Date: 20250702
  Transmission Date: 20251020
  Serious: Yes (Life-Threatening, Hospitalization, Other)
  Sender: PFIZER
  Company Number: EU-009507513-2298102

PATIENT
  Age: 29 Year
  Sex: Female

DRUGS (7)
  1. EPIRUBICIN HYDROCHLORIDE [Suspect]
     Active Substance: EPIRUBICIN HYDROCHLORIDE
     Indication: Triple negative breast cancer
     Dates: start: 20241018, end: 20241018
  2. EPIRUBICIN HYDROCHLORIDE [Suspect]
     Active Substance: EPIRUBICIN HYDROCHLORIDE
     Dates: start: 20241101, end: 20241101
  3. EPIRUBICIN HYDROCHLORIDE [Suspect]
     Active Substance: EPIRUBICIN HYDROCHLORIDE
     Dates: start: 20241115, end: 20241115
  4. KEYTRUDA [Suspect]
     Active Substance: PEMBROLIZUMAB
     Indication: Triple negative breast cancer
     Dates: start: 20241018, end: 20241115
  5. CYCLOPHOSPHAMIDE [Suspect]
     Active Substance: CYCLOPHOSPHAMIDE
     Indication: Triple negative breast cancer
     Dates: start: 20241018, end: 20241018
  6. CYCLOPHOSPHAMIDE [Suspect]
     Active Substance: CYCLOPHOSPHAMIDE
     Dates: start: 20241101, end: 20241101
  7. CYCLOPHOSPHAMIDE [Suspect]
     Active Substance: CYCLOPHOSPHAMIDE
     Dates: start: 20241115, end: 20241115

REACTIONS (15)
  - Pancytopenia [Recovered/Resolved]
  - Pancreatitis [Recovered/Resolved]
  - Thyroiditis [Recovered/Resolved]
  - Pneumonia [Recovered/Resolved]
  - Hepatitis [Recovered/Resolved]
  - Encephalitis [Recovered/Resolved]
  - Multiple organ dysfunction syndrome [Recovered/Resolved]
  - Haemorrhage [Recovered/Resolved]
  - Thyrotoxic crisis [Recovered/Resolved]
  - Hypophysitis [Recovered/Resolved]
  - Type 1 diabetes mellitus [Recovered/Resolved]
  - Pneumonitis [Recovered/Resolved]
  - Unresponsive to stimuli [Recovered/Resolved]
  - Joint range of motion decreased [Not Recovered/Not Resolved]
  - Inappropriate schedule of product administration [Unknown]

NARRATIVE: CASE EVENT DATE: 20241115
